FAERS Safety Report 5650143-X (Version None)
Quarter: 2008Q1

REPORT INFORMATION
  Report Type: 
  Country: None (occurrence: None)
  Receive Date: 20080131
  Receipt Date: 20071226
  Transmission Date: 20080703
  Serious: No
  Sender: FDA-Public Use
  Company Number: US200712005114

PATIENT
  Age: 67 Year
  Sex: Female

DRUGS (14)
  1. BYETTA [Suspect]
     Indication: TYPE 2 DIABETES MELLITUS
     Dosage: 5 UG, 2/D, SUBCUTANEOUS
     Route: 058
     Dates: start: 20071201
  2. GLIPIZIDE [Concomitant]
  3. CILOSTAZOL [Concomitant]
  4. ASPIRIN [Concomitant]
  5. PAROXETINE HCL [Concomitant]
  6. GEMFIBROZIL [Concomitant]
  7. SOMA [Concomitant]
  8. LORAZEPAM [Concomitant]
  9. FELODIPINE [Concomitant]
  10. DIOVAN (HYDROCHLOROTHIAZIDE, VALSARTAN) [Concomitant]
  11. NITROFURANTOIN [Concomitant]
  12. GABAPENTIN [Concomitant]
  13. DIURETICS [Concomitant]
  14. POTASSIUM (POTASSIUM) [Concomitant]

REACTIONS (2)
  - ASTHENIA [None]
  - VISUAL DISTURBANCE [None]
